FAERS Safety Report 5872069-9 (Version None)
Quarter: 2008Q3

REPORT INFORMATION
  Report Type: 
  Country: None (occurrence: None)
  Receive Date: 20080905
  Receipt Date: 20080825
  Transmission Date: 20090109
  Serious: Yes (Congenital Anomaly)
  Sender: FDA-Public Use
  Company Number: A0687236A

PATIENT
  Sex: Male

DRUGS (2)
  1. PAXIL [Suspect]
     Dosage: 20MG PER DAY
     Dates: start: 19930408, end: 20011003
  2. VITAMIN TAB [Concomitant]

REACTIONS (6)
  - ASPERGER'S DISORDER [None]
  - AUTISM [None]
  - CARDIAC DISORDER [None]
  - DRUG EXPOSURE DURING PREGNANCY [None]
  - MENTAL RETARDATION [None]
  - VENTRICULAR SEPTAL DEFECT [None]
